FAERS Safety Report 19327362 (Version 2)
Quarter: 2021Q3

REPORT INFORMATION
  Report Type: Report from Study
  Country: IT (occurrence: IT)
  Receive Date: 20210528
  Receipt Date: 20210803
  Transmission Date: 20211014
  Serious: Yes (Other)
  Sender: FDA-Public Use
  Company Number: IT-TEVA-2021-IT-1916504

PATIENT
  Age: 75 Year
  Sex: Female

DRUGS (13)
  1. PACLITAXEL. [Suspect]
     Active Substance: PACLITAXEL
     Indication: CHEMOTHERAPY
     Dosage: 1 DF
     Route: 042
     Dates: start: 20210505, end: 20210505
  2. FILGRASTIM [Suspect]
     Active Substance: FILGRASTIM
     Indication: CHEMOTHERAPY
     Route: 065
  3. IBUPROFEN. [Concomitant]
     Active Substance: IBUPROFEN
  4. SOLDESAM [Concomitant]
     Active Substance: DEXAMETHASONE
  5. PARACETAMOL [Concomitant]
     Active Substance: ACETAMINOPHEN
  6. SERTRALINE [Concomitant]
     Active Substance: SERTRALINE HYDROCHLORIDE
  7. PANTOPRAZOLE [Concomitant]
     Active Substance: PANTOPRAZOLE
  8. TAPENTADOL [Concomitant]
     Active Substance: TAPENTADOL
  9. CARBOPLATIN. [Suspect]
     Active Substance: CARBOPLATIN
     Indication: CHEMOTHERAPY
     Dosage: 1 DF
     Route: 042
     Dates: start: 20210505, end: 20210505
  10. FENTANYL. [Concomitant]
     Active Substance: FENTANYL
  11. DELORAZEPAM [Concomitant]
     Active Substance: DELORAZEPAM
  12. RAMIPRIL. [Concomitant]
     Active Substance: RAMIPRIL
  13. ENOXAPARIN SODIUM. [Concomitant]
     Active Substance: ENOXAPARIN SODIUM

REACTIONS (1)
  - Sepsis [Recovering/Resolving]

NARRATIVE: CASE EVENT DATE: 20210508
